FAERS Safety Report 6614304-5 (Version None)
Quarter: 2010Q1

REPORT INFORMATION
  Report Type: 
  Country: None (occurrence: None)
  Receive Date: 20100303
  Receipt Date: 20100303
  Transmission Date: 20100710
  Serious: Yes (Other)
  Sender: FDA-Public Use
  Company Number: None

PATIENT
  Age: 41 Year
  Sex: Male
  Weight: 110.2241 kg

DRUGS (10)
  1. FLECTOR [Suspect]
     Indication: BACK PAIN
     Dosage: 1 PATCH BID TOP
     Route: 061
     Dates: start: 20100203, end: 20100219
  2. METHADONE [Concomitant]
  3. OXYCONTIN [Concomitant]
  4. FLEXERIL [Concomitant]
  5. GABAPENTIN [Concomitant]
  6. SENNA-DOCUSATE [Concomitant]
  7. AMLODIPINE [Concomitant]
  8. DOXAZOSIN MESYLATE [Concomitant]
  9. VYTORIN [Concomitant]
  10. AMBIEN [Concomitant]

REACTIONS (4)
  - ANALGESIC DRUG LEVEL DECREASED [None]
  - DYSPNOEA EXERTIONAL [None]
  - OEDEMA PERIPHERAL [None]
  - WEIGHT INCREASED [None]
